FAERS Safety Report 15030644 (Version 2)
Quarter: 2018Q3

REPORT INFORMATION
  Report Type: Report from Study
  Country: AR (occurrence: AR)
  Receive Date: 20180619
  Receipt Date: 20180702
  Transmission Date: 20181010
  Serious: Yes (Death, Hospitalization)
  Sender: FDA-Public Use
  Company Number: AR-BAYER-2018-114193

PATIENT
  Age: 40 Year
  Sex: Female

DRUGS (1)
  1. STIVARGA [Suspect]
     Active Substance: REGORAFENIB
     Indication: COLORECTAL CANCER
     Dosage: 160 MG, QD
     Route: 048
     Dates: start: 20180514, end: 2018

REACTIONS (2)
  - Dehydration [Not Recovered/Not Resolved]
  - Colorectal cancer [Fatal]

NARRATIVE: CASE EVENT DATE: 2018
